FAERS Safety Report 6461460-8 (Version None)
Quarter: 2009Q4

REPORT INFORMATION
  Report Type: 
  Country: None (occurrence: None)
  Receive Date: 20091123
  Receipt Date: 20091113
  Transmission Date: 20100525
  Serious: Yes (Other)
  Sender: FDA-Public Use
  Company Number: DE-1171575

PATIENT

DRUGS (1)
  1. FLUORESCEIN SODIUM        (FLUORESCEIN SODIUM) [Suspect]
     Dosage: INTRAVENOUS BOLUS
     Route: 040

REACTIONS (2)
  - ANAPHYLACTIC SHOCK [None]
  - ANGIOEDEMA [None]
